FAERS Safety Report 13525393 (Version 1)
Quarter: 2017Q2

REPORT INFORMATION
  Report Type: Spontaneous
  Country: US (occurrence: US)
  Receive Date: 20170508
  Receipt Date: 20170508
  Transmission Date: 20170830
  Serious: No
  Sender: FDA-Public Use
  Company Number: US-ROCHE-1127708

PATIENT
  Sex: Female

DRUGS (9)
  1. AVASTIN [Suspect]
     Active Substance: BEVACIZUMAB
     Indication: BREAST CANCER FEMALE
     Route: 065
  2. ABRAXANE [Concomitant]
     Active Substance: PACLITAXEL
     Route: 065
  3. NAVELBINE [Concomitant]
     Active Substance: VINORELBINE TARTRATE
  4. ABRAXANE [Concomitant]
     Active Substance: PACLITAXEL
     Route: 065
  5. DOXIL [Concomitant]
     Active Substance: DOXORUBICIN HYDROCHLORIDE
  6. GEMZAR [Concomitant]
     Active Substance: GEMCITABINE HYDROCHLORIDE
  7. TAXOL [Concomitant]
     Active Substance: PACLITAXEL
  8. XELODA [Concomitant]
     Active Substance: CAPECITABINE
     Route: 065
  9. TAXOTERE [Concomitant]
     Active Substance: DOCETAXEL

REACTIONS (2)
  - Metastases to chest wall [Recovering/Resolving]
  - Metastases to lymph nodes [Unknown]
